FAERS Safety Report 20770099 (Version 1)
Quarter: 2022Q2

REPORT INFORMATION
  Report Type: Spontaneous
  Country: US (occurrence: None)
  Receive Date: 20220429
  Receipt Date: 20220429
  Transmission Date: 20220720
  Serious: Yes (Death)
  Sender: FDA-Public Use
  Company Number: None

PATIENT
  Sex: Male

DRUGS (10)
  1. ABIRATERONE ACETATE [Suspect]
     Active Substance: ABIRATERONE ACETATE
     Indication: Prostate cancer
     Dosage: FREQUENCY : DAILY;  ON AN EMPTY STOMACH?
     Route: 048
     Dates: start: 20220421
  2. ABIRATERONE ACETATE [Suspect]
     Active Substance: ABIRATERONE ACETATE
     Dosage: FREQUENCY : DAILY;?
     Route: 048
  3. ARTESUNATE SOL [Concomitant]
  4. DEXAMETHASONE [Concomitant]
     Active Substance: DEXAMETHASONE
  5. KEYTRUDA [Concomitant]
     Active Substance: PEMBROLIZUMAB
  6. METHYLENE POW BLUE [Concomitant]
  7. NITAZOZANIDE [Concomitant]
  8. ONDANSETRON [Concomitant]
     Active Substance: ONDANSETRON
  9. OXYCODONE SOL [Concomitant]
  10. PROCHLOPRER [Concomitant]

REACTIONS (1)
  - Death [None]
